FAERS Safety Report 22055331 (Version 2)
Quarter: 2023Q1

REPORT INFORMATION
  Report Type: Report from Study
  Country: CA (occurrence: CA)
  Receive Date: 20230302
  Receipt Date: 20230331
  Transmission Date: 20230417
  Serious: Yes (Hospitalization, Other)
  Sender: FDA-Public Use
  Company Number: CA-JNJFOC-20230257903

PATIENT
  Age: 42 Year
  Sex: Male

DRUGS (1)
  1. SIMPONI [Suspect]
     Active Substance: GOLIMUMAB
     Indication: Ankylosing spondylitis
     Route: 058
     Dates: start: 20120227, end: 20230224

REACTIONS (6)
  - Sepsis [Unknown]
  - Substance abuse [Unknown]
  - Product dose omission issue [Unknown]
  - Gastroenteritis [Unknown]
  - Colitis [Unknown]
  - Pain in extremity [Unknown]
